FAERS Safety Report 9210730 (Version 2)
Quarter: 2013Q2

REPORT INFORMATION
  Report Type: Spontaneous
  Country: US (occurrence: US)
  Receive Date: 20130404
  Receipt Date: 20130429
  Transmission Date: 20140414
  Serious: Yes (Death, Hospitalization)
  Sender: FDA-Public Use
  Company Number: US-GLAXOSMITHKLINE-A1018739A

PATIENT
  Age: 41 Year
  Sex: Female

DRUGS (5)
  1. VOTRIENT [Suspect]
     Indication: OVARIAN CANCER
     Dosage: 800MG PER DAY
     Route: 048
     Dates: start: 20121101, end: 201302
  2. ZOFRAN [Concomitant]
  3. PROCHLORPERAZINE [Concomitant]
  4. ATIVAN [Concomitant]
  5. OXYCONTIN [Concomitant]

REACTIONS (2)
  - Ovarian cancer [Fatal]
  - Disease progression [Fatal]
